FAERS Safety Report 8971643 (Version 1)
Quarter: 2012Q4

REPORT INFORMATION
  Report Type: 
  Country: GB (occurrence: GB)
  Receive Date: 20121217
  Receipt Date: 20121217
  Transmission Date: 20130627
  Serious: Yes (Hospitalization)
  Sender: FDA-Public Use
  Company Number: GB-JNJFOC-20121203015

PATIENT
  Age: 78 Year
  Sex: Female
  Weight: 78.5 kg

DRUGS (10)
  1. LEVAQUIN [Suspect]
     Indication: PRODUCT USED FOR UNKNOWN INDICATION
     Route: 065
     Dates: start: 20090428, end: 20090501
  2. TRASTUZUMAB [Suspect]
     Indication: BREAST CANCER METASTATIC
     Route: 042
  3. TRASTUZUMAB [Suspect]
     Indication: BREAST CANCER METASTATIC
     Route: 042
     Dates: start: 20090403
  4. DOCETAXEL [Suspect]
     Indication: BREAST CANCER METASTATIC
     Route: 042
     Dates: start: 20090403
  5. PERTUZUMAB [Suspect]
     Indication: PRODUCT USED FOR UNKNOWN INDICATION
     Route: 042
     Dates: start: 20090404
  6. ZOFRAN [Concomitant]
     Route: 065
     Dates: start: 20090402
  7. DECADRON [Concomitant]
     Route: 065
     Dates: start: 20090401
  8. PRAVACHOL [Concomitant]
     Route: 065
     Dates: start: 2003
  9. COZAAR [Concomitant]
     Route: 065
     Dates: start: 2003
  10. CALTRATE [Concomitant]
     Route: 065
     Dates: start: 2004

REACTIONS (1)
  - Hypertension [Recovered/Resolved]
